FAERS Safety Report 21395322 (Version 1)
Quarter: 2022Q3

REPORT INFORMATION
  Report Type: Other
  Country: GB (occurrence: GB)
  Receive Date: 20220930
  Receipt Date: 20220930
  Transmission Date: 20221027
  Serious: Yes (Life-Threatening, Hospitalization, Disabling)
  Sender: FDA-Public Use
  Company Number: None

PATIENT
  Age: 44 Year
  Sex: Male
  Weight: 76.2 kg

DRUGS (8)
  1. FLUOXETINE [Suspect]
     Active Substance: FLUOXETINE HYDROCHLORIDE
     Indication: Product used for unknown indication
     Dosage: 20 MILLIGRAM
     Route: 065
     Dates: start: 2017, end: 2020
  2. AMLODIPINE [Suspect]
     Active Substance: AMLODIPINE BESYLATE
     Indication: Hypertension
     Dosage: UNK
     Route: 065
     Dates: start: 2020
  3. AMITRIPTYLINE [Suspect]
     Active Substance: AMITRIPTYLINE
     Indication: Product used for unknown indication
     Dosage: 30 MILLIGRAM
     Route: 065
     Dates: start: 2017, end: 2020
  4. BISOPROLOL [Suspect]
     Active Substance: BISOPROLOL
     Indication: Hypertension
     Dosage: 10 MILLIGRAM
     Route: 065
     Dates: start: 2018
  5. BISOPROLOL [Suspect]
     Active Substance: BISOPROLOL
     Dosage: 5 MILLIGRAM
     Route: 065
  6. RAMIPRIL [Suspect]
     Active Substance: RAMIPRIL
     Indication: Hypertension
     Dosage: 5 MILLIGRAM (MORNING), PER DAY
     Route: 048
     Dates: start: 2018, end: 20210211
  7. OMEPRAZOLE [Concomitant]
     Active Substance: OMEPRAZOLE
     Indication: Gastric ulcer
     Dosage: UNK
     Route: 065
     Dates: start: 2014, end: 2015
  8. OMEPRAZOLE [Concomitant]
     Active Substance: OMEPRAZOLE
     Dosage: 20 MILLIGRAM
     Route: 065

REACTIONS (31)
  - Chest pain [Unknown]
  - Peripheral coldness [Unknown]
  - Trismus [Recovered/Resolved]
  - Chest discomfort [Unknown]
  - Syncope [Unknown]
  - Speech disorder [Unknown]
  - Haemoptysis [Recovered/Resolved]
  - Axillary pain [Recovered/Resolved]
  - Brain oedema [Unknown]
  - Pulmonary oedema [Unknown]
  - Generalised oedema [Unknown]
  - Brain injury [Unknown]
  - Mental impairment [Recovered/Resolved]
  - Intelligence test abnormal [Recovered/Resolved]
  - Facial paralysis [Unknown]
  - Adrenal adenoma [Unknown]
  - Fluid retention [Recovered/Resolved]
  - Hypertension [Unknown]
  - Transient ischaemic attack [Unknown]
  - Muscle twitching [Unknown]
  - Dyspnoea [Recovered/Resolved]
  - Confusional state [Unknown]
  - Blood pressure decreased [Recovered/Resolved]
  - Feeling cold [Unknown]
  - Nausea [Unknown]
  - Vomiting [Unknown]
  - Anxiety [Unknown]
  - Depression [Unknown]
  - Suicidal behaviour [Unknown]
  - Tachycardia [Unknown]
  - Bradycardia [Unknown]

NARRATIVE: CASE EVENT DATE: 20190101
